FAERS Safety Report 16310299 (Version 1)
Quarter: 2019Q2

REPORT INFORMATION
  Report Type: Spontaneous
  Country: US (occurrence: US)
  Receive Date: 20190514
  Receipt Date: 20190514
  Transmission Date: 20190711
  Serious: No
  Sender: FDA-Public Use
  Company Number: US-SUNOVION-2019SUN001887

PATIENT
  Age: 76 Year
  Sex: Female

DRUGS (4)
  1. LATUDA [Suspect]
     Active Substance: LURASIDONE HYDROCHLORIDE
     Indication: PRODUCT USED FOR UNKNOWN INDICATION
     Dosage: 40 MG
     Route: 048
     Dates: end: 201810
  2. INGREZZA [Concomitant]
     Active Substance: VALBENAZINE
     Dosage: UNKNOWN
     Route: 065
  3. LATUDA [Suspect]
     Active Substance: LURASIDONE HYDROCHLORIDE
     Dosage: 20 MG
     Route: 048
     Dates: start: 20180808
  4. AUSTEDO [Concomitant]
     Active Substance: DEUTETRABENAZINE
     Dosage: UNKNOWN
     Route: 065

REACTIONS (2)
  - Tongue movement disturbance [Unknown]
  - Dyskinesia [Unknown]
